FAERS Safety Report 14988651 (Version 1)
Quarter: 2018Q2

REPORT INFORMATION
  Report Type: Spontaneous
  Country: US (occurrence: US)
  Receive Date: 20180608
  Receipt Date: 20180608
  Transmission Date: 20180711
  Serious: Yes (Hospitalization)
  Sender: FDA-Public Use
  Company Number: US-PFIZER INC-2018229483

PATIENT
  Age: 56 Year
  Sex: Female

DRUGS (2)
  1. XELJANZ XR [Suspect]
     Active Substance: TOFACITINIB CITRATE
     Dosage: 11 MG, 1X/DAY
  2. NYSTATIN. [Suspect]
     Active Substance: NYSTATIN
     Dosage: UNK

REACTIONS (8)
  - Diabetes mellitus [Unknown]
  - Dehydration [Unknown]
  - Herpes zoster [Unknown]
  - Concussion [Unknown]
  - Limb discomfort [Not Recovered/Not Resolved]
  - Renal failure [Unknown]
  - Poor quality sleep [Unknown]
  - Fibromyalgia [Unknown]
